FAERS Safety Report 9303542 (Version 1)
Quarter: 2013Q2

REPORT INFORMATION
  Report Type: Report from Study
  Country: CN (occurrence: CN)
  Receive Date: 20130522
  Receipt Date: 20130522
  Transmission Date: 20140414
  Serious: Yes (Other)
  Sender: FDA-Public Use
  Company Number: CN-ROCHE-1227566

PATIENT
  Age: 56 Year
  Sex: Male

DRUGS (3)
  1. PEGASYS [Suspect]
     Indication: HEPATITIS C
     Route: 058
     Dates: start: 201112, end: 201212
  2. PEGASYS [Suspect]
     Route: 058
     Dates: start: 201212
  3. RIBAVIRIN [Concomitant]
     Indication: HEPATITIS C
     Dosage: 6 A DAY
     Route: 048
     Dates: start: 201112

REACTIONS (2)
  - White blood cell count decreased [Unknown]
  - Neutrophil count decreased [Unknown]
